FAERS Safety Report 5237392-X (Version None)
Quarter: 2007Q1

REPORT INFORMATION
  Report Type: 
  Country: None (occurrence: None)
  Receive Date: 20070213
  Receipt Date: 20070205
  Transmission Date: 20070707
  Serious: Yes (Other)
  Sender: FDA-Public Use
  Company Number: JP-SHR-JP-SHR-03-011731

PATIENT
  Age: 18 Year
  Sex: Male
  Weight: 61 kg

DRUGS (12)
  1. BETASERON [Suspect]
     Indication: MULTIPLE SCLEROSIS
     Dosage: 4 MIU, EVERY 2D
     Route: 058
     Dates: start: 20020731, end: 20020804
  2. BETASERON [Suspect]
     Dosage: 8 MIU, EVERY 2D
     Route: 058
     Dates: start: 20020806, end: 20021107
  3. LOXONIN [Concomitant]
     Indication: PAIN
     Dosage: 60 MG, 3X/DAY
     Route: 048
     Dates: start: 20020731, end: 20020813
  4. DASEN [Concomitant]
     Indication: PAIN
     Dosage: 1 TAB(S), 3X/DAY
     Route: 048
     Dates: start: 20020731, end: 20020813
  5. MUCOSTA [Concomitant]
     Indication: PROPHYLAXIS
     Dosage: 100 MG, 3X/DAY
     Route: 048
     Dates: start: 20020731, end: 20020813
  6. CYANOCOBALAMIN [Concomitant]
     Dosage: 1 TAB(S), 3X/DAY
     Route: 048
     Dates: start: 20020731
  7. SOLU-MEDROL [Concomitant]
     Indication: MULTIPLE SCLEROSIS
     Dosage: 1 G, 1X/DAY
     Route: 041
     Dates: start: 20020907, end: 20020909
  8. SOLU-MEDROL [Concomitant]
     Dosage: 1 G, 1X/DAY
     Route: 041
     Dates: start: 20020914, end: 20020916
  9. SOLU-MEDROL [Concomitant]
     Dosage: 1 G, 1X/DAY
     Route: 041
     Dates: start: 20020921, end: 20020923
  10. SOLU-MEDROL [Concomitant]
     Dosage: 1 G, 1X/DAY
     Route: 041
     Dates: start: 20021007, end: 20021009
  11. GASTER D [Concomitant]
     Indication: PROPHYLAXIS
     Dosage: 40 MG, 1X/DAY
     Route: 048
     Dates: start: 20020907, end: 20020915
  12. INTEBAN [Concomitant]
     Indication: PAIN PROPHYLAXIS
     Dosage: 25 MG, 3X/DAY
     Route: 048
     Dates: start: 20020907, end: 20020915

REACTIONS (2)
  - HEMIPLEGIA [None]
  - MULTIPLE SCLEROSIS [None]
